FAERS Safety Report 10161924 (Version 2)
Quarter: 2014Q2

REPORT INFORMATION
  Report Type: Report from Study
  Country: JP (occurrence: JP)
  Receive Date: 20140509
  Receipt Date: 20140620
  Transmission Date: 20141212
  Serious: Yes (Other)
  Sender: FDA-Public Use
  Company Number: JP-JNJFOC-20140501530

PATIENT
  Age: 62 Year
  Sex: Female
  Weight: 60 kg

DRUGS (14)
  1. STELARA [Suspect]
     Indication: PSORIATIC ARTHROPATHY
     Route: 058
     Dates: start: 20120713, end: 20120713
  2. STELARA [Suspect]
     Indication: PSORIATIC ARTHROPATHY
     Route: 058
     Dates: start: 20120810, end: 20120810
  3. STELARA [Suspect]
     Indication: PSORIATIC ARTHROPATHY
     Route: 058
     Dates: start: 20121102, end: 20121102
  4. STELARA [Suspect]
     Indication: PSORIATIC ARTHROPATHY
     Route: 058
     Dates: start: 20130705
  5. STELARA [Suspect]
     Indication: PSORIATIC ARTHROPATHY
     Route: 058
     Dates: start: 20130412, end: 20130412
  6. STELARA [Suspect]
     Indication: PSORIATIC ARTHROPATHY
     Route: 058
     Dates: start: 20130125, end: 20130125
  7. HALCION [Concomitant]
     Route: 048
     Dates: start: 20120713
  8. CELECOX [Concomitant]
     Indication: PSORIATIC ARTHROPATHY
     Route: 048
     Dates: start: 20111125, end: 20130321
  9. CELECOX [Concomitant]
     Indication: PSORIATIC ARTHROPATHY
     Route: 048
     Dates: start: 20130412, end: 20130705
  10. MUCOSTA [Concomitant]
     Indication: PROPHYLAXIS
     Route: 048
     Dates: start: 20120713
  11. URSO [Concomitant]
     Route: 048
     Dates: start: 20120810
  12. HALCION [Concomitant]
     Route: 048
     Dates: start: 20120713
  13. CELTECT [Concomitant]
     Route: 048
     Dates: start: 20120907, end: 20130411
  14. JUVELA [Concomitant]
     Indication: PROPHYLAXIS
     Route: 061
     Dates: start: 20130125

REACTIONS (1)
  - Liver disorder [Recovered/Resolved]
